FAERS Safety Report 5102404-0 (Version None)
Quarter: 2006Q3

REPORT INFORMATION
  Report Type: 
  Country: None (occurrence: None)
  Receive Date: 20060912
  Receipt Date: 20060906
  Transmission Date: 20061208
  Serious: Yes (Hospitalization)
  Sender: FDA-Public Use
  Company Number: JP-AVENTIS-200612793JP

PATIENT

DRUGS (2)
  1. LANTUS [Suspect]
     Route: 058
  2. OPTICLIK (INSULIN INJECTION PEN) [Suspect]

REACTIONS (1)
  - CONVULSION [None]
